FAERS Safety Report 5261292-2 (Version None)
Quarter: 2007Q1

REPORT INFORMATION
  Report Type: 
  Country: None (occurrence: None)
  Receive Date: 20070306
  Receipt Date: 20070223
  Transmission Date: 20070707
  Serious: Yes (Life-Threatening)
  Sender: FDA-Public Use
  Company Number: 200702AGG00592

PATIENT
  Age: 76 Year
  Sex: Male

DRUGS (3)
  1. AGGRASTAT [Suspect]
     Indication: ACUTE MYOCARDIAL INFARCTION
     Dosage: (INTRAVENOUS )
     Route: 042
     Dates: start: 20061119, end: 20061119
  2. ASPIRIN [Concomitant]
  3. CLOPIDOGREL BISULFATE [Concomitant]

REACTIONS (2)
  - ACUTE MYOCARDIAL INFARCTION [None]
  - VENTRICULAR FIBRILLATION [None]
